FAERS Safety Report 6033809-1 (Version None)
Quarter: 2009Q1

REPORT INFORMATION
  Report Type: 
  Country: None (occurrence: None)
  Receive Date: 20090112
  Receipt Date: 20090108
  Transmission Date: 20090719
  Serious: Yes (Death)
  Sender: FDA-Public Use
  Company Number: US-JNJFOC-20090101644

PATIENT
  Age: 39 Year
  Sex: Male

DRUGS (4)
  1. RISPERDAL CONSTA [Suspect]
     Indication: BIPOLAR DISORDER
     Route: 030
  2. ELAVIL [Concomitant]
     Route: 065
  3. KLONOPIN [Concomitant]
     Route: 065
  4. INVEGA [Concomitant]
     Route: 065

REACTIONS (1)
  - DEATH [None]
